FAERS Safety Report 15331935 (Version 1)
Quarter: 2018Q3

REPORT INFORMATION
  Report Type: Spontaneous
  Country: SE (occurrence: SE)
  Receive Date: 20180829
  Receipt Date: 20180829
  Transmission Date: 20181010
  Serious: Yes (Other)
  Sender: FDA-Public Use
  Company Number: PHHY2011SE14431

PATIENT
  Age: 11 Year
  Sex: Male

DRUGS (7)
  1. ADRIAMYCIN [Suspect]
     Active Substance: DOXORUBICIN HYDROCHLORIDE
     Indication: EWING^S SARCOMA
     Route: 065
  2. METHOTREXATE. [Suspect]
     Active Substance: METHOTREXATE
     Indication: EWING^S SARCOMA
     Route: 065
  3. VINCRISTINE [Suspect]
     Active Substance: VINCRISTINE
     Indication: EWING^S SARCOMA
     Route: 065
  4. CISPLATIN. [Suspect]
     Active Substance: CISPLATIN
     Indication: EWING^S SARCOMA
     Dosage: 240 MG/M2, UNK
     Route: 065
  5. BLEOMYCIN [Suspect]
     Active Substance: BLEOMYCIN SULFATE
     Indication: EWING^S SARCOMA
     Route: 065
  6. ACTINOMYCIN D [Suspect]
     Active Substance: DACTINOMYCIN
     Indication: EWING^S SARCOMA
     Route: 065
  7. CYCLOPHOSPHAMIDE. [Suspect]
     Active Substance: CYCLOPHOSPHAMIDE
     Indication: EWING^S SARCOMA
     Route: 065

REACTIONS (4)
  - Initial insomnia [Unknown]
  - Deafness [Unknown]
  - Tinnitus [Unknown]
  - Hypoacusis [Not Recovered/Not Resolved]
